FAERS Safety Report 25241174 (Version 1)
Quarter: 2025Q2

REPORT INFORMATION
  Report Type: Spontaneous
  Country: US (occurrence: US)
  Receive Date: 20250425
  Receipt Date: 20250425
  Transmission Date: 20250716
  Serious: No
  Sender: GALDERMA
  Company Number: US-GALDERMA-US2025003550

PATIENT

DRUGS (1)
  1. EPSOLAY [Suspect]
     Active Substance: BENZOYL PEROXIDE
     Indication: Rosacea
     Route: 061

REACTIONS (3)
  - Swelling face [Unknown]
  - Erythema [Unknown]
  - Expired product administered [Recovered/Resolved]
